FAERS Safety Report 8958849 (Version 3)
Quarter: 2014Q1

REPORT INFORMATION
  Report Type: Spontaneous
  Country: US (occurrence: US)
  Receive Date: 20121212
  Receipt Date: 20140331
  Transmission Date: 20141002
  Serious: Yes (Other)
  Sender: FDA-Public Use
  Company Number: US-BAYER-2012-129313

PATIENT
  Age: 26 Year
  Sex: Female
  Weight: 102.95 kg

DRUGS (17)
  1. YAZ [Suspect]
     Indication: CONTRACEPTION
     Dosage: UNK
     Dates: start: 20120301, end: 20120501
  2. VITAMIN D2 [Concomitant]
     Indication: CONSTIPATION
     Dosage: 50000 U, UNK
  3. INSULIN ASPART [Concomitant]
     Dosage: 2.4 UNITS /HR
  4. INSULIN ASPART [Concomitant]
     Dosage: 100 U/ML, USE THREE TIMES A DAY BEFORE MEALS
     Route: 058
  5. INSULIN GLARGINE [Concomitant]
     Dosage: 100 U/ML, UNK
  6. INSULIN GLARGINE [Concomitant]
     Dosage: 65 UNITS EVERY NIGHT AT BEDTIME
     Route: 058
  7. HUMAN RECOMBINANT ANALOG [Concomitant]
     Dosage: 100 U/ML, UNK
  8. LIPITOR [Concomitant]
     Dosage: 10 MG, UNK
  9. ASPIRIN [Concomitant]
     Dosage: 81 MG, UNK
  10. NEXIUM [Concomitant]
     Dosage: 20 MG, UNK
  11. LISINOPRIL/HYDROCHLOROTHIAZIDE [Concomitant]
     Dosage: 20/26 MG ONCE A DAY
     Route: 048
  12. NOVOLOG [Concomitant]
  13. LANTUS [Concomitant]
  14. ACETAMINOPHEN [Concomitant]
  15. ATORVASTATIN CALCIUM [Concomitant]
     Dosage: 10 MG, EVERY DAY
     Route: 048
  16. METHOCARBAMOL [Concomitant]
     Indication: HYPOTONIA
     Dosage: 500 MG, ONE TABLET THREE TIME A DAY
     Route: 048
  17. INSULIN [INSULIN] [Concomitant]

REACTIONS (3)
  - Pulmonary embolism [None]
  - Deep vein thrombosis [None]
  - Injury [None]
